FAERS Safety Report 9974512 (Version 1)
Quarter: 2014Q1

REPORT INFORMATION
  Report Type: Report from Study
  Country: US (occurrence: US)
  Receive Date: 20140306
  Receipt Date: 20140306
  Transmission Date: 20141002
  Serious: No
  Sender: FDA-Public Use
  Company Number: US-ABBVIE-13P-163-1157181-00

PATIENT
  Age: 42 Year
  Sex: Female
  Weight: 122.13 kg

DRUGS (5)
  1. HUMIRA [Suspect]
     Indication: PSORIATIC ARTHROPATHY
     Route: 058
     Dates: start: 20121103, end: 20130919
  2. HUMIRA [Suspect]
     Route: 058
     Dates: start: 20130919
  3. NAPROXEN [Concomitant]
  4. CLARITIN [Concomitant]
  5. VITAMINS [Concomitant]

REACTIONS (2)
  - Fatigue [Not Recovered/Not Resolved]
  - Dysthymic disorder [Not Recovered/Not Resolved]
